FAERS Safety Report 7075669-6 (Version None)
Quarter: 2010Q4

REPORT INFORMATION
  Report Type: 
  Country: None (occurrence: None)
  Receive Date: 20101030
  Receipt Date: 20101025
  Transmission Date: 20110411
  Serious: Yes (Other)
  Sender: FDA-Public Use
  Company Number: FR-WYE-H18302910

PATIENT
  Age: 53 Year
  Sex: Female

DRUGS (7)
  1. METHOTREXATE [Interacting]
     Indication: PRECURSOR T-LYMPHOBLASTIC LYMPHOMA/LEUKAEMIA
     Dosage: SEVERAL UNSPECIFIED DOSES
     Route: 037
  2. METHOTREXATE [Interacting]
     Dosage: THEN LOW DOSE AT 40 MG
  3. METHOTREXATE [Interacting]
     Dosage: 5040 MG EVERY 1 TOT
  4. FOLINIC ACID [Concomitant]
     Dosage: UNKNOWN
  5. FLUOXETINE [Concomitant]
  6. PANTOPRAZOLE [Suspect]
  7. VALACICLOVIR [Concomitant]

REACTIONS (4)
  - DRUG CLEARANCE DECREASED [None]
  - DRUG INTERACTION [None]
  - DRUG LEVEL INCREASED [None]
  - RENAL FAILURE ACUTE [None]
